FAERS Safety Report 5699231-2 (Version None)
Quarter: 2008Q2

REPORT INFORMATION
  Report Type: 
  Country: None (occurrence: None)
  Receive Date: 20080407
  Receipt Date: 20080407
  Transmission Date: 20081010
  Serious: Yes (Other)
  Sender: FDA-Public Use
  Company Number: None

PATIENT
  Age: 36 Year
  Sex: Female
  Weight: 83.9154 kg

DRUGS (1)
  1. MIRENA [Suspect]
     Indication: CONTRACEPTION
     Dates: start: 20030115, end: 20080401

REACTIONS (9)
  - ABDOMINAL DISTENSION [None]
  - ALOPECIA [None]
  - AMNESIA [None]
  - AXILLARY MASS [None]
  - DEPRESSION [None]
  - LOSS OF LIBIDO [None]
  - MIGRAINE [None]
  - MOOD SWINGS [None]
  - WEIGHT INCREASED [None]
